FAERS Safety Report 8471106-5 (Version None)
Quarter: 2012Q2

REPORT INFORMATION
  Report Type: 
  Country: None (occurrence: None)
  Receive Date: 20120627
  Receipt Date: 20120619
  Transmission Date: 20120825
  Serious: Yes (Other)
  Sender: FDA-Public Use
  Company Number: BR-PFIZER INC-2012148316

PATIENT
  Sex: Female

DRUGS (2)
  1. XALCOM [Suspect]
     Dosage: UNK
     Route: 047
     Dates: start: 20120201, end: 20120501
  2. LATANOPROST [Suspect]
     Dosage: UNK

REACTIONS (2)
  - BLINDNESS [None]
  - VISUAL IMPAIRMENT [None]
